FAERS Safety Report 6190825-7 (Version None)
Quarter: 2009Q2

REPORT INFORMATION
  Report Type: 
  Country: None (occurrence: None)
  Receive Date: 20090514
  Receipt Date: 20090507
  Transmission Date: 20091009
  Serious: Yes (Other)
  Sender: FDA-Public Use
  Company Number: PHEH2008US07366

PATIENT
  Sex: Male

DRUGS (5)
  1. ZOMETA [Suspect]
     Dosage: 4MG MONTHLY
  2. RADIATION THERAPY [Concomitant]
  3. PERCOCET [Concomitant]
     Indication: PAIN
  4. THALIDOMIDE [Concomitant]
  5. CHEMOTHERAPEUTICS NOS [Concomitant]

REACTIONS (10)
  - ANXIETY [None]
  - CHEST PAIN [None]
  - DECREASED INTEREST [None]
  - GENERAL PHYSICAL HEALTH DETERIORATION [None]
  - INFLUENZA LIKE ILLNESS [None]
  - MALAISE [None]
  - MEDIASTINAL DISORDER [None]
  - OSTEONECROSIS [None]
  - PAIN [None]
  - PLASMACYTOMA [None]
